FAERS Safety Report 6017925-6 (Version None)
Quarter: 2008Q4

REPORT INFORMATION
  Report Type: 
  Country: None (occurrence: None)
  Receive Date: 20081223
  Receipt Date: 20081216
  Transmission Date: 20090506
  Serious: Yes (Other)
  Sender: FDA-Public Use
  Company Number: US-JNJFOC-20081204638

PATIENT
  Age: 90 Year
  Sex: Female
  Weight: 72.58 kg

DRUGS (7)
  1. IMODIUM A-D [Suspect]
     Route: 048
  2. IMODIUM A-D [Suspect]
     Indication: DIARRHOEA
     Route: 048
  3. LEXAPRO [Concomitant]
     Indication: RELAXATION THERAPY
  4. BUPROPION HCL [Concomitant]
     Indication: RELAXATION THERAPY
  5. CLONIDINE [Concomitant]
     Indication: HYPERTENSION
     Dosage: 0.2 MG, UP TO 3-5 A DAY
  6. ALPRAZOLAM [Concomitant]
     Indication: PANIC DISORDER
     Dosage: 1 MG, 1-2 A DAY
  7. HYOSCYAMINE [Concomitant]
     Indication: ABDOMINAL PAIN

REACTIONS (2)
  - EXPIRED DRUG ADMINISTERED [None]
  - HAEMATOCHEZIA [None]
